FAERS Safety Report 7715337-8 (Version None)
Quarter: 2011Q3

REPORT INFORMATION
  Report Type: 
  Country: None (occurrence: None)
  Receive Date: 20110810
  Receipt Date: 20110613
  Transmission Date: 20111222
  Serious: No
  Sender: FDA-Public Use
  Company Number: 1000021615

PATIENT
  Age: 56 Year
  Sex: Male

DRUGS (5)
  1. SAVELLA [Suspect]
     Indication: FIBROMYALGIA
     Dosage: SEE IMAGE, ORAL
     Route: 048
     Dates: start: 20110601, end: 20110601
  2. SAVELLA [Suspect]
     Indication: FIBROMYALGIA
     Dosage: SEE IMAGE, ORAL
     Route: 048
     Dates: start: 20110604, end: 20110607
  3. SAVELLA [Suspect]
     Indication: FIBROMYALGIA
     Dosage: SEE IMAGE, ORAL
     Route: 048
     Dates: start: 20110608, end: 20110610
  4. SAVELLA [Suspect]
     Indication: FIBROMYALGIA
     Dosage: SEE IMAGE, ORAL
     Route: 048
     Dates: start: 20110602, end: 20110603
  5. MULTIVITAMIN (MULTIVITAMIN) (MULTIVITAMIN) [Concomitant]

REACTIONS (16)
  - HEADACHE [None]
  - SPUTUM DISCOLOURED [None]
  - BLADDER PAIN [None]
  - TESTICULAR PAIN [None]
  - TONGUE DISORDER [None]
  - NAUSEA [None]
  - COUGH [None]
  - PALPITATIONS [None]
  - DYSGEUSIA [None]
  - BACK PAIN [None]
  - TINNITUS [None]
  - MUSCULOSKELETAL PAIN [None]
  - DYSPNOEA [None]
  - HYPERHIDROSIS [None]
  - GASTROOESOPHAGEAL REFLUX DISEASE [None]
  - OROPHARYNGEAL PAIN [None]
